FAERS Safety Report 8246098-4 (Version None)
Quarter: 2012Q1

REPORT INFORMATION
  Report Type: 
  Country: None (occurrence: None)
  Receive Date: 20120328
  Receipt Date: 20120328
  Transmission Date: 20120608
  Serious: Yes (Disabling)
  Sender: FDA-Public Use
  Company Number: None

PATIENT
  Age: 47 Year
  Sex: Male
  Weight: 86.1834 kg

DRUGS (1)
  1. QVAR 80 [Suspect]
     Indication: ASTHMA
     Dosage: 80 MCG 1 PUFF 2X A DAY
     Route: 055
     Dates: start: 20110118, end: 20110201

REACTIONS (1)
  - BREAST PAIN [None]
